FAERS Safety Report 6327417-2 (Version None)
Quarter: 2009Q3

REPORT INFORMATION
  Report Type: 
  Country: None (occurrence: None)
  Receive Date: 20090825
  Receipt Date: 20090813
  Transmission Date: 20100115
  Serious: Yes (Hospitalization)
  Sender: FDA-Public Use
  Company Number: DE-PFIZER INC-2009254891

PATIENT
  Age: 74 Year

DRUGS (5)
  1. SUNITINIB MALATE [Suspect]
     Indication: METASTATIC RENAL CELL CARCINOMA
     Dosage: 50 MG, 1X/DAY
     Dates: start: 20090701
  2. SUNITINIB MALATE [Suspect]
     Indication: METASTASES TO LUNG
  3. SUNITINIB MALATE [Suspect]
     Indication: METASTASES TO PANCREAS
  4. ASTONIN-H [Concomitant]
     Dosage: 0.1 MG DAILY
     Dates: start: 20080801
  5. UROL [Concomitant]
     Dosage: 475 MG DAILY

REACTIONS (1)
  - SYNCOPE [None]
